FAERS Safety Report 21410652 (Version 1)
Quarter: 2022Q4

REPORT INFORMATION
  Report Type: Spontaneous
  Country: TT (occurrence: TT)
  Receive Date: 20221005
  Receipt Date: 20221005
  Transmission Date: 20230113
  Serious: Yes (Hospitalization)
  Sender: FDA-Public Use
  Company Number: TT-MYLANLABS-2022M1110780

PATIENT
  Age: 32 Year
  Sex: Male

DRUGS (8)
  1. ATORVASTATIN [Suspect]
     Active Substance: ATORVASTATIN
     Indication: Angina unstable
     Dosage: UNK, HIGH INTENSITY DOSE
     Route: 065
  2. AMLODIPINE [Suspect]
     Active Substance: AMLODIPINE BESYLATE
     Indication: Angina unstable
     Dosage: UNK, HIGH INTENSITY DOSE
     Route: 065
  3. RAMIPRIL [Suspect]
     Active Substance: RAMIPRIL
     Indication: Angina unstable
     Dosage: UNK, HIGH INTENSITY DOSE
     Route: 065
  4. CARVEDILOL [Suspect]
     Active Substance: CARVEDILOL
     Indication: Angina unstable
     Dosage: UNK, HIGH INTENSITY DOSE
     Route: 065
  5. CARVEDILOL [Suspect]
     Active Substance: CARVEDILOL
     Dosage: UNK
     Route: 065
  6. ASPIRIN [Concomitant]
     Active Substance: ASPIRIN
     Indication: Anticoagulant therapy
     Dosage: UNK
     Route: 065
  7. TICAGRELOR [Concomitant]
     Active Substance: TICAGRELOR
     Indication: Anticoagulant therapy
     Dosage: UNK
     Route: 065
  8. HEPARIN [Concomitant]
     Active Substance: HEPARIN SODIUM
     Indication: Anticoagulant therapy
     Dosage: UNK
     Route: 065

REACTIONS (3)
  - Drug ineffective [Unknown]
  - Wellens^ syndrome [Unknown]
  - Off label use [Unknown]
